FAERS Safety Report 4819193-7 (Version None)
Quarter: 2005Q4

REPORT INFORMATION
  Report Type: 
  Country: None (occurrence: None)
  Receive Date: 20051103
  Receipt Date: 20051101
  Transmission Date: 20060501
  Serious: Yes (Other)
  Sender: FDA-Public Use
  Company Number: US-GLAXOSMITHKLINE-A0580492A

PATIENT
  Age: 4 Week
  Sex: Female

DRUGS (2)
  1. RETROVIR [Suspect]
     Indication: PROPHYLAXIS
     Dosage: .53CC FOUR TIMES PER DAY
     Route: 048
  2. NO CONCURRENT MEDICATION [Concomitant]

REACTIONS (4)
  - ABDOMINAL PAIN [None]
  - DIARRHOEA [None]
  - GROWTH RETARDATION [None]
  - JAUNDICE [None]
